FAERS Safety Report 5683366-4 (Version None)
Quarter: 2008Q1

REPORT INFORMATION
  Report Type: 
  Country: None (occurrence: None)
  Receive Date: 20080326
  Receipt Date: 20080307
  Transmission Date: 20080703
  Serious: Yes (Other)
  Sender: FDA-Public Use
  Company Number: 2008-00217FE

PATIENT
  Age: 29 Year
  Sex: Female

DRUGS (3)
  1. FSH HP (FOLLICLE-STIMULATING HORMONE, HUMAN) [Suspect]
     Indication: INFERTILITY
  2. GNRH ANALOGUE [Suspect]
  3. HCG (HCG) [Suspect]
     Indication: INFERTILITY

REACTIONS (1)
  - BENIGN HYDATIDIFORM MOLE [None]
